FAERS Safety Report 4293234-0 (Version None)
Quarter: 2004Q1

REPORT INFORMATION
  Report Type: 
  Country: None (occurrence: None)
  Receive Date: 20040210
  Receipt Date: 20031210
  Transmission Date: 20041129
  Serious: Yes (Other)
  Sender: FDA-Public Use
  Company Number: 2003-03-0386

PATIENT
  Sex: Male
  Weight: 90.7194 kg

DRUGS (4)
  1. CORICIDIN D SRT [Suspect]
     Dosage: ORAL
     Route: 048
  2. ALKA-SELTZER PLUS COLD MEDICINE [Concomitant]
  3. SELDANE [Concomitant]
  4. TRIAMINIC EXPECTORANT [Concomitant]

REACTIONS (4)
  - ANXIETY [None]
  - CEREBROVASCULAR ACCIDENT [None]
  - INJURY [None]
  - SOCIAL AVOIDANT BEHAVIOUR [None]
